FAERS Safety Report 24773138 (Version 1)
Quarter: 2024Q4

REPORT INFORMATION
  Report Type: Spontaneous
  Country: US (occurrence: US)
  Receive Date: 20241225
  Receipt Date: 20241225
  Transmission Date: 20250115
  Serious: No
  Sender: AMGEN
  Company Number: US-AMGEN-USASP2024250360

PATIENT
  Age: 64 Year
  Sex: Female

DRUGS (2)
  1. RITUXIMAB [Suspect]
     Active Substance: RITUXIMAB
     Indication: Chronic lymphocytic leukaemia
     Dosage: UNK
     Route: 065
  2. ACALABRUTINIB [Concomitant]
     Active Substance: ACALABRUTINIB
     Indication: Chronic lymphocytic leukaemia
     Dosage: UNK

REACTIONS (8)
  - Oedema [Recovered/Resolved]
  - Off label use [Unknown]
  - Actinic elastosis [Unknown]
  - Telangiectasia [Unknown]
  - Skin exfoliation [Unknown]
  - Skin plaque [Unknown]
  - Skin hyperpigmentation [Unknown]
  - Hyperaesthesia [Unknown]
